FAERS Safety Report 4345359-9 (Version None)
Quarter: 2004Q2

REPORT INFORMATION
  Report Type: 
  Country: None (occurrence: None)
  Receive Date: 20040421
  Receipt Date: 20040408
  Transmission Date: 20050107
  Serious: Yes (Hospitalization)
  Sender: FDA-Public Use
  Company Number: 2004024876

PATIENT
  Age: 25 Year
  Sex: Female

DRUGS (3)
  1. ZITHROMAX [Suspect]
     Indication: ILL-DEFINED DISORDER
     Dosage: 500 MG BID ORAL
     Route: 048
  2. TIAPROFENIC ACID [Concomitant]
  3. ALODONT (CETYLPYRIDINIUM CHLORIDE, CHLOROBUTANOL, EUGENOL, VERATROL) [Concomitant]

REACTIONS (3)
  - HYPERSENSITIVITY [None]
  - POST PROCEDURAL COMPLICATION [None]
  - SUPERINFECTION [None]
